FAERS Safety Report 7761271-7 (Version None)
Quarter: 2011Q3

REPORT INFORMATION
  Report Type: 
  Country: None (occurrence: None)
  Receive Date: 20110915
  Receipt Date: 20110830
  Transmission Date: 20111222
  Serious: Yes (Other)
  Sender: FDA-Public Use
  Company Number: 2011AP001931

PATIENT
  Age: 27 Year
  Sex: Male

DRUGS (1)
  1. CITALOPRAM HYDROBROMIDE [Suspect]
     Indication: PRODUCT USED FOR UNKNOWN INDICATION

REACTIONS (9)
  - SPEECH DISORDER [None]
  - PARAESTHESIA [None]
  - DISORIENTATION [None]
  - AGGRESSION [None]
  - HEART RATE INCREASED [None]
  - HALLUCINATION [None]
  - MANIA [None]
  - SENSORY DISTURBANCE [None]
  - HYPERVENTILATION [None]
